FAERS Safety Report 15158123 (Version 1)
Quarter: 2018Q3

REPORT INFORMATION
  Report Type: Spontaneous
  Country: US (occurrence: US)
  Receive Date: 20180718
  Receipt Date: 20180718
  Transmission Date: 20181010
  Serious: No
  Sender: FDA-Public Use
  Company Number: US-ALLERGAN-1766003US

PATIENT
  Age: 85 Year
  Sex: Female
  Weight: 68.27 kg

DRUGS (1)
  1. NAMENDA XR [Suspect]
     Active Substance: MEMANTINE HYDROCHLORIDE
     Indication: DEMENTIA ALZHEIMER^S TYPE
     Dosage: 28 MG, QD
     Route: 065
     Dates: start: 2012, end: 20171101

REACTIONS (8)
  - Walking aid user [Unknown]
  - Loss of personal independence in daily activities [Unknown]
  - Hypokinesia [Unknown]
  - Nervousness [Unknown]
  - Muscular weakness [Unknown]
  - Memory impairment [Unknown]
  - Fall [Unknown]
  - Incontinence [Not Recovered/Not Resolved]

NARRATIVE: CASE EVENT DATE: 201710
